FAERS Safety Report 7700064-3 (Version None)
Quarter: 2011Q3

REPORT INFORMATION
  Report Type: 
  Country: None (occurrence: None)
  Receive Date: 20110822
  Receipt Date: 20110810
  Transmission Date: 20111222
  Serious: Yes (Death, Hospitalization)
  Sender: FDA-Public Use
  Company Number: US-GENZYME-POMP-1001717

PATIENT
  Sex: Male
  Weight: 155 kg

DRUGS (1)
  1. LUMIZYME [Suspect]
     Indication: GLYCOGEN STORAGE DISEASE TYPE II
     Dosage: 3100 MG, Q2W
     Route: 042
     Dates: start: 20100827

REACTIONS (2)
  - FOREIGN BODY ASPIRATION [None]
  - CARDIAC ARREST [None]
